FAERS Safety Report 7623001-9 (Version None)
Quarter: 2011Q3

REPORT INFORMATION
  Report Type: 
  Country: None (occurrence: None)
  Receive Date: 20110720
  Receipt Date: 20110715
  Transmission Date: 20111222
  Serious: Yes (Hospitalization)
  Sender: FDA-Public Use
  Company Number: ES-SANOFI-AVENTIS-2011SA045042

PATIENT
  Age: 86 Year
  Sex: Male

DRUGS (6)
  1. AMIKACIN [Suspect]
     Indication: SEPSIS
     Route: 042
     Dates: start: 20110217, end: 20110222
  2. ALBUTEROL [Suspect]
     Indication: BRONCHOSPASM
     Route: 055
     Dates: start: 20110217
  3. ENOXAPARIN SODIUM [Suspect]
     Indication: PROPHYLAXIS
     Route: 058
     Dates: start: 20110220
  4. ANTIBIOTICS [Suspect]
     Indication: SEPSIS
     Route: 042
     Dates: start: 20110217, end: 20110222
  5. PANTOPRAZOLE SODIUM [Suspect]
     Indication: PROPHYLAXIS
     Route: 042
     Dates: start: 20110217, end: 20110222
  6. METHYLPREDNISOLONE [Suspect]
     Indication: BRONCHOSPASM
     Route: 042
     Dates: start: 20110217

REACTIONS (1)
  - HEPATITIS CHOLESTATIC [None]
